FAERS Safety Report 4899788-5 (Version None)
Quarter: 2006Q1

REPORT INFORMATION
  Report Type: 
  Country: None (occurrence: None)
  Receive Date: 20060118
  Receipt Date: 20050510
  Transmission Date: 20060701
  Serious: No
  Sender: FDA-Public Use
  Company Number: 2005000904

PATIENT
  Age: 66 Year
  Sex: Male
  Weight: 72.1219 kg

DRUGS (14)
  1. TARCEVA [Suspect]
     Indication: NON-SMALL CELL LUNG CANCER
     Dosage: 150 MG (QD), ORAL
     Route: 048
  2. ALDACTONE [Concomitant]
  3. ALLEGRA [Concomitant]
  4. ASPIRIN [Concomitant]
  5. AZMACORT [Concomitant]
  6. CENTRUM SILVER [Concomitant]
  7. COREG [Concomitant]
  8. DIOVAN [Concomitant]
  9. FORADIL [Concomitant]
  10. LANOXIN [Concomitant]
  11. NASONEX [Concomitant]
  12. SPIRIVA [Concomitant]
  13. TESSALON [Concomitant]
  14. ZETIA [Concomitant]

REACTIONS (6)
  - ACNE [None]
  - DECREASED APPETITE [None]
  - INCREASED APPETITE [None]
  - INGROWING NAIL [None]
  - PRURITUS [None]
  - RASH MORBILLIFORM [None]
